FAERS Safety Report 5670047-6 (Version None)
Quarter: 2008Q1

REPORT INFORMATION
  Report Type: 
  Country: None (occurrence: None)
  Receive Date: 20080312
  Receipt Date: 20080225
  Transmission Date: 20080703
  Serious: Yes (Other)
  Sender: FDA-Public Use
  Company Number: DSM-2008-00242

PATIENT
  Sex: Male

DRUGS (1)
  1. VOTUM (OLMESARTAN MEDOXOMIL) (OLMESARTAN MEDOXOMIL) [Suspect]
     Indication: HYPERTENSION

REACTIONS (2)
  - ANGINA PECTORIS [None]
  - MICTURITION URGENCY [None]
